FAERS Safety Report 6749444-3 (Version None)
Quarter: 2010Q2

REPORT INFORMATION
  Report Type: 
  Country: None (occurrence: None)
  Receive Date: 20100601
  Receipt Date: 20100520
  Transmission Date: 20101027
  Serious: Yes (Other)
  Sender: FDA-Public Use
  Company Number: SG-ROCHE-705548

PATIENT
  Sex: Female

DRUGS (2)
  1. OSELTAMIVIR PHOSPHATE [Suspect]
     Indication: H1N1 INFLUENZA
     Route: 065
  2. ZANAMIVIR [Concomitant]
     Dosage: SECOND LINE DRUG

REACTIONS (1)
  - ABORTION SPONTANEOUS [None]
